FAERS Safety Report 6273294-8 (Version None)
Quarter: 2009Q3

REPORT INFORMATION
  Report Type: 
  Country: None (occurrence: None)
  Receive Date: 20090720
  Receipt Date: 20090707
  Transmission Date: 20100115
  Serious: Yes (Other)
  Sender: FDA-Public Use
  Company Number: GB-ROCHE-639933

PATIENT
  Sex: Male
  Weight: 80.8 kg

DRUGS (6)
  1. XELODA [Suspect]
     Indication: COLORECTAL CANCER
     Route: 048
     Dates: start: 20090212, end: 20090505
  2. METFORMIN [Concomitant]
     Dosage: START DATE REPORTED AS ^YEARS AGO^
     Route: 048
  3. BENDROFLUAZIDE [Concomitant]
     Indication: HYPERTENSION
     Dosage: START DATE REPORTED AS ^YEARS AGO^
     Route: 048
  4. SIMVASTATIN [Concomitant]
     Indication: BLOOD CHOLESTEROL DECREASED
     Dosage: START DATE REPORTED AS ^YEARS AGO^
     Route: 048
  5. INSULIN [Concomitant]
     Dosage: DOSE REPORTED AS 6U BD
     Route: 058
     Dates: start: 20070101
  6. DOXAZOSIN MESYLATE [Concomitant]
     Indication: HYPERTENSION
     Dosage: START DATE REPORTED AS ^YEARS AGO^
     Route: 048

REACTIONS (4)
  - DIABETIC RETINOPATHY [None]
  - DIARRHOEA [None]
  - FATIGUE [None]
  - PALMAR-PLANTAR ERYTHRODYSAESTHESIA SYNDROME [None]
